FAERS Safety Report 18058707 (Version 2)
Quarter: 2020Q3

REPORT INFORMATION
  Report Type: Spontaneous
  Country: JP (occurrence: JP)
  Receive Date: 20200723
  Receipt Date: 20200903
  Transmission Date: 20201103
  Serious: Yes (Other)
  Sender: FDA-Public Use
  Company Number: JP-AMGEN-JPNSP2020092317

PATIENT
  Sex: Female

DRUGS (7)
  1. BLINCYTO [Suspect]
     Active Substance: BLINATUMOMAB
     Indication: ACUTE LYMPHOCYTIC LEUKAEMIA RECURRENT
     Dosage: 9 MICROGRAM, QD
     Route: 042
     Dates: start: 20200528, end: 20200530
  2. BLINCYTO [Suspect]
     Active Substance: BLINATUMOMAB
     Dosage: 9 MICROGRAM, QD
     Route: 042
     Dates: start: 20200824
  3. BLINCYTO [Suspect]
     Active Substance: BLINATUMOMAB
     Dosage: 4.5 MICROGRAM, QD
     Route: 042
     Dates: start: 20200615, end: 20200617
  4. BLINCYTO [Suspect]
     Active Substance: BLINATUMOMAB
     Dosage: 28 MICROGRAM, QD
     Route: 042
     Dates: start: 20200720, end: 20200727
  5. BLINCYTO [Suspect]
     Active Substance: BLINATUMOMAB
     Dosage: 2.25 MICROGRAM, QD
     Route: 042
     Dates: start: 20200629, end: 20200706
  6. BLINCYTO [Suspect]
     Active Substance: BLINATUMOMAB
     Dosage: 4.5 MICROGRAM, QD
     Route: 042
     Dates: start: 20200706, end: 20200713
  7. BLINCYTO [Suspect]
     Active Substance: BLINATUMOMAB
     Dosage: 9 MICROGRAM, QD
     Route: 042
     Dates: start: 20200713, end: 20200720

REACTIONS (5)
  - Malaise [Unknown]
  - Underdose [Unknown]
  - Haemophagocytic lymphohistiocytosis [Recovered/Resolved]
  - Cytokine release syndrome [Recovering/Resolving]
  - Serum ferritin increased [Recovered/Resolved]

NARRATIVE: CASE EVENT DATE: 20200529
